FAERS Safety Report 7121827-1 (Version None)
Quarter: 2010Q4

REPORT INFORMATION
  Report Type: 
  Country: None (occurrence: None)
  Receive Date: 20101124
  Receipt Date: 20101116
  Transmission Date: 20110411
  Serious: Yes (Other)
  Sender: FDA-Public Use
  Company Number: PHHY2010US78007

PATIENT
  Age: 41 Year
  Sex: Female

DRUGS (1)
  1. OXCARBAZEPINE [Suspect]
     Dosage: 90 TABLETS AT ONCE
     Route: 048

REACTIONS (8)
  - ABNORMAL BEHAVIOUR [None]
  - ATRIOVENTRICULAR DISSOCIATION [None]
  - DISORIENTATION [None]
  - DYSARTHRIA [None]
  - INTENTIONAL OVERDOSE [None]
  - MENTAL STATUS CHANGES [None]
  - NODAL ARRHYTHMIA [None]
  - VENTRICULAR TACHYCARDIA [None]
